FAERS Safety Report 23492780 (Version 1)
Quarter: 2024Q1

REPORT INFORMATION
  Report Type: Spontaneous
  Country: FR (occurrence: FR)
  Receive Date: 20240207
  Receipt Date: 20240207
  Transmission Date: 20240410
  Serious: Yes (Life-Threatening)
  Sender: FDA-Public Use
  Company Number: None

PATIENT
  Age: 38 Year
  Sex: Female

DRUGS (5)
  1. AMOXICILLIN [Suspect]
     Active Substance: AMOXICILLIN
     Indication: Prophylaxis
     Dosage: TIME INTERVAL: TOTAL
     Route: 048
     Dates: start: 20230803, end: 20230803
  2. KETAMINE [Concomitant]
     Active Substance: KETAMINE
     Indication: Wisdom teeth removal
     Route: 042
     Dates: start: 20230803, end: 20230803
  3. SUFENTA [Concomitant]
     Active Substance: SUFENTANIL CITRATE
     Indication: Wisdom teeth removal
     Route: 042
     Dates: start: 20230803, end: 20230803
  4. LEVOTHYROXINE [Concomitant]
     Active Substance: LEVOTHYROXINE\LEVOTHYROXINE SODIUM
     Indication: Hypothyroidism
     Route: 048
  5. BETADINE [Concomitant]
     Active Substance: POVIDONE-IODINE
     Indication: Wisdom teeth removal
     Dosage: 10 PER CENT, MOUTHWASH SOLUTION
     Route: 002
     Dates: start: 20230803, end: 20230803

REACTIONS (1)
  - Anaphylactic shock [Recovered/Resolved]

NARRATIVE: CASE EVENT DATE: 20230803
